FAERS Safety Report 15466552 (Version 3)
Quarter: 2018Q4

REPORT INFORMATION
  Report Type: Report from Study
  Country: None (occurrence: US)
  Receive Date: 20181004
  Receipt Date: 20181030
  Transmission Date: 20190204
  Serious: Yes (Other)
  Sender: FDA-Public Use
  Company Number: US-ABBVIE-18K-163-2429795-00

PATIENT
  Age: 61 Year
  Sex: Male

DRUGS (1)
  1. DUOPA [Suspect]
     Active Substance: CARBIDOPA\LEVODOPA
     Indication: PARKINSON^S DISEASE
     Route: 050
     Dates: start: 20180405, end: 20180928

REACTIONS (10)
  - Duodenal ulcer [Not Recovered/Not Resolved]
  - Embedded device [Recovered/Resolved]
  - Gastrointestinal pain [Unknown]
  - Gastric ulcer [Unknown]
  - Muscle strain [Unknown]
  - Medical device pain [Unknown]
  - Abdominal pain upper [Unknown]
  - Device dislocation [Recovered/Resolved]
  - Stoma site ulcer [Recovered/Resolved]
  - Erosive duodenitis [Not Recovered/Not Resolved]

NARRATIVE: CASE EVENT DATE: 2018
